FAERS Safety Report 9067762 (Version 1)
Quarter: 2013Q1

REPORT INFORMATION
  Report Type: Spontaneous
  Country: BR (occurrence: BR)
  Receive Date: 20130206
  Receipt Date: 20130206
  Transmission Date: 20140127
  Serious: Yes (Other)
  Sender: FDA-Public Use
  Company Number: PHHY2013BR010711

PATIENT
  Sex: Male
  Weight: 86 kg

DRUGS (6)
  1. ZOMETA [Suspect]
     Indication: HEPATIC NEOPLASM
     Dosage: UNK UKN, EVERY 28 DAYS
     Route: 042
  2. LOSARTAN POTASSIUM [Concomitant]
     Indication: HYPERTENSION
     Dosage: UNK UKN, UNK
  3. SUTENT [Concomitant]
     Indication: HEPATIC NEOPLASM
     Dosage: 1 DF, QD
     Route: 048
  4. TRADOL [Concomitant]
     Indication: ABDOMINAL PAIN
     Dosage: UNK UKN, UNK
  5. VIAGRA [Concomitant]
     Indication: ERECTILE DYSFUNCTION
     Dosage: 50 MG, UNK
  6. VIAGRA [Concomitant]
     Dosage: 100 MG, UNK
     Route: 048
     Dates: start: 20070117

REACTIONS (3)
  - Diabetes mellitus inadequate control [Unknown]
  - Peyronie^s disease [Unknown]
  - Neoplasm [Unknown]
